FAERS Safety Report 18323896 (Version 1)
Quarter: 2020Q3

REPORT INFORMATION
  Report Type: Spontaneous
  Country: US (occurrence: US)
  Receive Date: 20200928
  Receipt Date: 20200928
  Transmission Date: 20201103
  Serious: No
  Sender: FDA-Public Use
  Company Number: US-009507513-2009USA005072

PATIENT
  Age: 36 Year
  Sex: Male

DRUGS (7)
  1. ZERBAXA [Suspect]
     Active Substance: CEFTOLOZANE SULFATE\TAZOBACTAM SODIUM
     Indication: PSEUDOMONAS AERUGINOSA MENINGITIS
     Dosage: 3 GRAM LOADING DOSE AS A ONE?HOUR IV INFUSION
     Route: 042
  2. GENTAMICIN. [Concomitant]
     Active Substance: GENTAMICIN
     Dosage: STARTED ON HOSPITALIZATION DAY 6, 500 MILLIGRAM ()APPROXIMATELY 7MG/KG), QD
     Route: 042
  3. ZERBAXA [Suspect]
     Active Substance: CEFTOLOZANE SULFATE\TAZOBACTAM SODIUM
     Dosage: 9 GRAM, CONTINUOUS INFUSION OVER 24 HOURS
     Route: 042
  4. CEFEPIME [Concomitant]
     Active Substance: CEFEPIME HYDROCHLORIDE
     Dosage: CONTINUOUS INFUSION
     Route: 042
  5. GENTAMICIN. [Concomitant]
     Active Substance: GENTAMICIN
     Indication: PSEUDOMONAS AERUGINOSA MENINGITIS
     Dosage: STARTED ON HOSPITALIZATION DAY 6, 8 MILLIGRAM, QD
  6. VANCOMYCIN [Concomitant]
     Active Substance: VANCOMYCIN
     Indication: PSEUDOMONAS AERUGINOSA MENINGITIS
     Dosage: 3500 MILLIGRAM, CONTINUOUS INFUSION OVER 24 HOURS
  7. CEFEPIME [Concomitant]
     Active Substance: CEFEPIME HYDROCHLORIDE
     Indication: PSEUDOMONAS AERUGINOSA MENINGITIS
     Dosage: 6 GRAM, CONTINUOUS INFUSION OVER 24 HOURS
     Route: 042

REACTIONS (1)
  - Off label use [Unknown]
